FAERS Safety Report 19636694 (Version 2)
Quarter: 2022Q1

REPORT INFORMATION
  Report Type: Spontaneous
  Country: US (occurrence: US)
  Receive Date: 20210730
  Receipt Date: 20220119
  Transmission Date: 20220423
  Serious: Yes (Hospitalization, Other)
  Sender: FDA-Public Use
  Company Number: US-PFIZER INC-2019439568

PATIENT
  Age: 66 Year
  Sex: Male
  Weight: 97.506 kg

DRUGS (1)
  1. XELJANZ XR [Suspect]
     Active Substance: TOFACITINIB CITRATE
     Indication: Rheumatoid arthritis
     Dosage: 11 MG, DAILY
     Dates: start: 201901, end: 2019

REACTIONS (3)
  - Hernia [Recovered/Resolved]
  - Immune system disorder [Unknown]
  - Limb operation [Unknown]

NARRATIVE: CASE EVENT DATE: 20190819
